FAERS Safety Report 6510717-0 (Version None)
Quarter: 2009Q4

REPORT INFORMATION
  Report Type: 
  Country: None (occurrence: None)
  Receive Date: 20091222
  Receipt Date: 20091022
  Transmission Date: 20100525
  Serious: No
  Sender: FDA-Public Use
  Company Number: US-ASTRAZENECA-2009SE21891

PATIENT
  Sex: Male

DRUGS (4)
  1. CRESTOR [Suspect]
     Route: 048
  2. PAXIL [Concomitant]
  3. CYCLOBENZAPRINE [Concomitant]
  4. ASPIRIN [Concomitant]

REACTIONS (1)
  - PAIN [None]
